FAERS Safety Report 6902831-2 (Version None)
Quarter: 2010Q3

REPORT INFORMATION
  Report Type: 
  Country: None (occurrence: None)
  Receive Date: 20100803
  Receipt Date: 20080722
  Transmission Date: 20110219
  Serious: No
  Sender: FDA-Public Use
  Company Number: US-PFIZER INC-2008062514

PATIENT
  Sex: Male
  Weight: 143.2 kg

DRUGS (2)
  1. LYRICA [Suspect]
     Indication: HERPES ZOSTER
     Route: 048
     Dates: start: 20070719
  2. LYRICA [Suspect]
     Indication: PAIN

REACTIONS (2)
  - FALL [None]
  - MUSCULAR WEAKNESS [None]
